FAERS Safety Report 6788626-1 (Version None)
Quarter: 2010Q2

REPORT INFORMATION
  Report Type: 
  Country: None (occurrence: None)
  Receive Date: 20100623
  Receipt Date: 20080416
  Transmission Date: 20101027
  Serious: No
  Sender: FDA-Public Use
  Company Number: US-PFIZER INC-2008033825

PATIENT

DRUGS (2)
  1. SOLU-MEDROL [Suspect]
     Indication: VOMITING
  2. SOLU-MEDROL [Suspect]
     Indication: MACULAR DEGENERATION

REACTIONS (1)
  - OFF LABEL USE [None]
